FAERS Safety Report 22532508 (Version 2)
Quarter: 2023Q2

REPORT INFORMATION
  Report Type: Spontaneous
  Country: CA (occurrence: CA)
  Receive Date: 20230607
  Receipt Date: 20230619
  Transmission Date: 20230722
  Serious: Yes (Other)
  Sender: FDA-Public Use
  Company Number: CA-TEVA-2023-CA-2893245

PATIENT
  Age: 41 Year
  Sex: Female
  Weight: 62 kg

DRUGS (13)
  1. WARFARIN [Suspect]
     Active Substance: WARFARIN
     Indication: Anticoagulant therapy
     Dosage: WARFARIN ALTERNATING AT A DOSE OF 1MG AND 2MG DAILY WITH A TARGET AN INR OF 2-3
     Route: 048
  2. WARFARIN [Suspect]
     Active Substance: WARFARIN
     Dosage: DOSAGE ADJUSTMENT FOR ELEVATED INR
     Route: 048
  3. PREDNISONE [Suspect]
     Active Substance: PREDNISONE
     Indication: Product used for unknown indication
     Dosage: 8 MILLIGRAM DAILY; ONCE A DAY
     Route: 048
  4. FERRIC DERISOMALTOSE [Suspect]
     Active Substance: FERRIC DERISOMALTOSE
     Indication: Iron deficiency anaemia
     Dosage: DOSE: 1000MG DILUTED IN 100ML SODIUM CHLORIDE, INFUSED AT A RATE 15ML/H FOR 20 MINUTES, 16.7 MG/KG
     Route: 041
     Dates: start: 20211102
  5. AMLODIPINE [Concomitant]
     Active Substance: AMLODIPINE BESYLATE
     Indication: Product used for unknown indication
     Dosage: 10 MILLIGRAM DAILY; ONCE A DAY
     Route: 048
  6. AZATHIOPRINE [Concomitant]
     Active Substance: AZATHIOPRINE
     Indication: Product used for unknown indication
     Dosage: 50 MILLIGRAM DAILY; ONCE A DAY
     Route: 048
  7. CALCIUM CARBONATE [Concomitant]
     Active Substance: CALCIUM CARBONATE
     Indication: Product used for unknown indication
     Dosage: 1000 MILLIGRAM DAILY; 500 MG TWICE A DAY
     Route: 048
  8. CHOLECALCIFEROL [Concomitant]
     Active Substance: CHOLECALCIFEROL
     Indication: Product used for unknown indication
     Dosage: 1000 IU (INTERNATIONAL UNIT) DAILY; ONCE A DAY
     Route: 048
  9. CITALOPRAM [Concomitant]
     Active Substance: CITALOPRAM HYDROBROMIDE
     Indication: Product used for unknown indication
     Dosage: 20 MILLIGRAM DAILY; ONCE A DAY
     Route: 048
  10. LABETALOL [Concomitant]
     Active Substance: LABETALOL\LABETALOL HYDROCHLORIDE
     Indication: Product used for unknown indication
     Dosage: 400 MILLIGRAM DAILY; 200 MG TWICE A DAY
     Route: 048
  11. LEVETIRACETAM [Concomitant]
     Active Substance: LEVETIRACETAM
     Indication: Product used for unknown indication
     Dosage: 1000 MILLIGRAM DAILY; 500 MG TWICE A DAY
     Route: 048
  12. MELATONIN [Concomitant]
     Active Substance: MELATONIN
     Indication: Product used for unknown indication
     Dosage: 1.5 MILLIGRAM DAILY; AT BEDTIME, ONCE A DAY
     Route: 048
  13. SODIUM CHLORIDE [Concomitant]
     Active Substance: SODIUM CHLORIDE
     Indication: Vehicle solution use
     Dosage: FERRIC DERISOMALTOSE WAS DILUTED IN 100ML SODIUM CHLORIDE, INFUSED AT A RATE 15ML/H FOR 20 MINUTES
     Route: 041
     Dates: start: 20211102

REACTIONS (3)
  - Administration site extravasation [Not Recovered/Not Resolved]
  - Administration site discolouration [Not Recovered/Not Resolved]
  - Infusion site pain [Unknown]

NARRATIVE: CASE EVENT DATE: 20211102
